FAERS Safety Report 19456175 (Version 1)
Quarter: 2021Q2

REPORT INFORMATION
  Report Type: Other
  Country: FR (occurrence: FR)
  Receive Date: 20210624
  Receipt Date: 20210624
  Transmission Date: 20210717
  Serious: Yes (Other)
  Sender: FDA-Public Use
  Company Number: FR-CADILA HEALTHCARE LIMITED-FR-ZYDUS-067029

PATIENT

DRUGS (6)
  1. SERTRALINE [Suspect]
     Active Substance: SERTRALINE HYDROCHLORIDE
     Indication: MENTAL DISORDER
     Dosage: 100 MILLIGRAM, QD
     Route: 048
     Dates: start: 20191108
  2. QUETIAPINE. [Suspect]
     Active Substance: QUETIAPINE
     Indication: MENTAL DISORDER
     Dosage: 200 MILLIGRAM, QD
     Route: 048
     Dates: start: 20201204, end: 20210308
  3. ALPRAZOLAM. [Concomitant]
     Active Substance: ALPRAZOLAM
     Indication: MENTAL DISORDER
     Dosage: 1 MILLIGRAM, QD
     Route: 048
     Dates: start: 20200310
  4. LORMETAZEPAM [Concomitant]
     Active Substance: LORMETAZEPAM
     Indication: MENTAL DISORDER
     Dosage: 2 MILLIGRAM, QD
     Route: 048
     Dates: start: 20191112
  5. RISPERIDONE. [Suspect]
     Active Substance: RISPERIDONE
     Indication: MENTAL DISORDER
     Dosage: UNKNOWN
     Route: 048
     Dates: start: 20190701, end: 20210423
  6. VALPROATE SODIUM. [Suspect]
     Active Substance: VALPROATE SODIUM
     Indication: MENTAL DISORDER
     Dosage: 1000 MILLIGRAM, QD
     Route: 048
     Dates: start: 20210308, end: 20210413

REACTIONS (4)
  - Tardive dyskinesia [Recovering/Resolving]
  - Akathisia [Not Recovered/Not Resolved]
  - Dystonia [Recovered/Resolved]
  - Tremor [Recovered/Resolved]

NARRATIVE: CASE EVENT DATE: 20201216
